FAERS Safety Report 5658075-8 (Version None)
Quarter: 2008Q1

REPORT INFORMATION
  Report Type: 
  Country: None (occurrence: None)
  Receive Date: 20080306
  Receipt Date: 20080228
  Transmission Date: 20080703
  Serious: Yes (Other)
  Sender: FDA-Public Use
  Company Number: JPI-P-003104

PATIENT
  Age: 67 Year
  Sex: Female
  Weight: 83.9154 kg

DRUGS (3)
  1. XYREM [Suspect]
     Indication: FATIGUE
     Dosage: 6 GM (3 MG, 2 IN 1 D), ORAL
     Route: 048
     Dates: start: 20080201, end: 20080226
  2. XYREM [Suspect]
     Indication: FIBROMYALGIA
     Dosage: 6 GM (3 MG, 2 IN 1 D), ORAL
     Route: 048
     Dates: start: 20080201, end: 20080226
  3. UNSPECIFIED CONCOMIANT MEDICATIONS (ALL OTHER THERAPEUTIC PRODUCTS) [Concomitant]

REACTIONS (2)
  - BLOOD CREATINE INCREASED [None]
  - BLOOD PRESSURE INCREASED [None]
